FAERS Safety Report 10188995 (Version 1)
Quarter: 2014Q2

REPORT INFORMATION
  Report Type: Spontaneous
  Country: IR (occurrence: IR)
  Receive Date: 20140522
  Receipt Date: 20140522
  Transmission Date: 20141212
  Serious: Yes (Death, Hospitalization, Other)
  Sender: FDA-Public Use
  Company Number: PHHY2014IR061917

PATIENT
  Age: 7 Year
  Sex: Male

DRUGS (10)
  1. CICLOSPORIN [Suspect]
     Indication: IMMUNOSUPPRESSION
     Dosage: 7 MG/KG, Q8H
  2. PREDNISONE [Suspect]
     Indication: IMMUNOSUPPRESSION
  3. METHYLPREDNISOLONE [Suspect]
     Indication: IMMUNOSUPPRESSION
  4. AZATHIOPRINE [Suspect]
  5. MYCOPHENOLATE MOFETIL [Suspect]
     Indication: IMMUNOSUPPRESSION
  6. VORICONAZOLE [Suspect]
     Indication: FUNGAL INFECTION
  7. AMPHOTERICIN B [Suspect]
     Indication: FUNGAL INFECTION
  8. RITUXIMAB [Suspect]
     Dosage: 375 MG/M2, PER WEEK
  9. IMMUNOGLOBULIN I.V [Concomitant]
     Indication: IMMUNOSUPPRESSION
     Route: 042
  10. PAMIDRONATE [Concomitant]

REACTIONS (6)
  - Death [Fatal]
  - Posterior reversible encephalopathy syndrome [Recovered/Resolved]
  - Convulsion [Recovered/Resolved]
  - Aspergillus infection [Unknown]
  - Fungal infection [Unknown]
  - Drug ineffective [Unknown]
